FAERS Safety Report 10594692 (Version 2)
Quarter: 2015Q2

REPORT INFORMATION
  Report Type: Spontaneous
  Country: AU (occurrence: AU)
  Receive Date: 20141120
  Receipt Date: 20150519
  Transmission Date: 20150821
  Serious: Yes (Other)
  Sender: FDA-Public Use
  Company Number: AU-DRREDDYS-USA/AUS/14/0044436

PATIENT
  Age: 23 Year
  Sex: Male

DRUGS (1)
  1. SERTRALINE [Suspect]
     Active Substance: SERTRALINE HYDROCHLORIDE
     Indication: PRODUCT USED FOR UNKNOWN INDICATION
     Route: 065

REACTIONS (3)
  - Vision blurred [Recovering/Resolving]
  - Maculopathy [Recovering/Resolving]
  - Metamorphopsia [Recovering/Resolving]
